FAERS Safety Report 18252820 (Version 2)
Quarter: 2020Q4

REPORT INFORMATION
  Report Type: Report from Study
  Country: CO (occurrence: CO)
  Receive Date: 20200910
  Receipt Date: 20201023
  Transmission Date: 20210113
  Serious: Yes (Death, Life-Threatening, Hospitalization, Other)
  Sender: FDA-Public Use
  Company Number: CO-AMGEN-COLSL2020145344

PATIENT
  Age: 58 Year
  Sex: Female

DRUGS (1)
  1. KYPROLIS [Suspect]
     Active Substance: CARFILZOMIB
     Indication: PLASMA CELL MYELOMA
     Dosage: 60 MILLIGRAM
     Route: 065
     Dates: start: 20200512, end: 20200826

REACTIONS (4)
  - Tumour lysis syndrome [Fatal]
  - Secondary immunodeficiency [Fatal]
  - COVID-19 pneumonia [Fatal]
  - Multiple organ dysfunction syndrome [Fatal]

NARRATIVE: CASE EVENT DATE: 20200826
